FAERS Safety Report 4283582-2 (Version None)
Quarter: 2004Q1

REPORT INFORMATION
  Report Type: 
  Country: None (occurrence: None)
  Receive Date: 20040202
  Receipt Date: 20031224
  Transmission Date: 20041129
  Serious: Yes (Hospitalization)
  Sender: FDA-Public Use
  Company Number: JP-GLAXOSMITHKLINE-B0318574A

PATIENT
  Age: 68 Year
  Sex: Male

DRUGS (5)
  1. PAXIL [Suspect]
     Indication: DEPRESSION
     Dosage: 20MG PER DAY
     Route: 048
     Dates: start: 20031210, end: 20031215
  2. D-CHLORPHENIRAMINE MALEATE [Concomitant]
     Indication: RHINITIS ALLERGIC
     Dosage: 2MG PER DAY
     Route: 048
     Dates: start: 20031210
  3. NICORANDIL [Concomitant]
     Indication: ANGINA PECTORIS
     Dosage: 15MG PER DAY
     Route: 048
     Dates: start: 20030514
  4. ALLOPURINOL [Concomitant]
     Indication: HYPERURICAEMIA
     Dosage: 100MG PER DAY
     Route: 048
  5. INSULIN ASPART [Concomitant]
     Indication: DIABETES MELLITUS
     Dosage: 58IU PER DAY
     Route: 058
     Dates: start: 20030221

REACTIONS (4)
  - ANOREXIA [None]
  - ASCITES [None]
  - CONDITION AGGRAVATED [None]
  - DYSPEPSIA [None]
